FAERS Safety Report 7739165-2 (Version None)
Quarter: 2011Q3

REPORT INFORMATION
  Report Type: 
  Country: None (occurrence: None)
  Receive Date: 20110909
  Receipt Date: 20110831
  Transmission Date: 20111222
  Serious: Yes (Hospitalization)
  Sender: FDA-Public Use
  Company Number: US-BIOGENIDEC-2011BI033921

PATIENT
  Age: 0 Day
  Sex: Male

DRUGS (1)
  1. AVONEX [Suspect]
     Indication: MATERNAL EXPOSURE DURING PREGNANCY
     Route: 064
     Dates: start: 19970101, end: 19980101

REACTIONS (1)
  - DYSPNOEA [None]
